FAERS Safety Report 16150192 (Version 1)
Quarter: 2019Q2

REPORT INFORMATION
  Report Type: Spontaneous
  Country: CN (occurrence: CN)
  Receive Date: 20190403
  Receipt Date: 20190403
  Transmission Date: 20190711
  Serious: Yes (Hospitalization, Other)
  Sender: FDA-Public Use
  Company Number: CN-ELI_LILLY_AND_COMPANY-CN201903016303

PATIENT
  Age: 52 Year
  Sex: Female
  Weight: 55 kg

DRUGS (5)
  1. INSULIN LISPRO [Suspect]
     Active Substance: INSULIN LISPRO
     Indication: DIABETES MELLITUS
     Dosage: 28 IU, EACH MORNING
     Route: 058
     Dates: start: 2015
  2. INSULIN LISPRO [Suspect]
     Active Substance: INSULIN LISPRO
     Dosage: 20 IU, EACH EVENING
     Route: 058
     Dates: start: 2015
  3. INSULIN HUMAN [Suspect]
     Active Substance: INSULIN HUMAN
     Indication: DIABETES MELLITUS
     Dosage: 12 IU, EACH MORNING
     Route: 058
     Dates: start: 2002, end: 2015
  4. ACARBOSE. [Concomitant]
     Active Substance: ACARBOSE
     Indication: DIABETES MELLITUS
     Dosage: 1 DOSAGE FORM, TID
     Route: 048
     Dates: start: 2015
  5. INSULIN HUMAN [Suspect]
     Active Substance: INSULIN HUMAN
     Dosage: 10 IU, EACH EVENING (8-10 UNITS)
     Route: 058
     Dates: start: 2002, end: 2015

REACTIONS (3)
  - Retinal haemorrhage [Unknown]
  - Blood glucose increased [Unknown]
  - Discomfort [Unknown]

NARRATIVE: CASE EVENT DATE: 2015
